FAERS Safety Report 5959073-7 (Version None)
Quarter: 2008Q4

REPORT INFORMATION
  Report Type: 
  Country: None (occurrence: None)
  Receive Date: 20081120
  Receipt Date: 20071015
  Transmission Date: 20090506
  Serious: No
  Sender: FDA-Public Use
  Company Number: A0687693A

PATIENT
  Age: 35 Year
  Sex: Female

DRUGS (2)
  1. WELLBUTRIN SR [Suspect]
     Indication: OBESITY
     Dosage: 150MG PER DAY
     Route: 048
     Dates: start: 20020101
  2. GLUCOPHAGE [Concomitant]

REACTIONS (1)
  - ANGER [None]
